FAERS Safety Report 7928479-9 (Version None)
Quarter: 2011Q4

REPORT INFORMATION
  Report Type: 
  Country: None (occurrence: None)
  Receive Date: 20111118
  Receipt Date: 20111115
  Transmission Date: 20120403
  Serious: Yes (Death, Other)
  Sender: FDA-Public Use
  Company Number: PHHY2011JP02670

PATIENT
  Age: 80 Year
  Sex: Female

DRUGS (2)
  1. ZOMETA [Suspect]
     Indication: METASTASES TO BONE
     Dosage: UNK
     Route: 041
  2. AREDIA [Suspect]

REACTIONS (3)
  - OSTEONECROSIS OF JAW [None]
  - NEOPLASM PROGRESSION [None]
  - NEOPLASM MALIGNANT [None]
